FAERS Safety Report 5164029-0 (Version None)
Quarter: 2006Q4

REPORT INFORMATION
  Report Type: 
  Country: None (occurrence: None)
  Receive Date: 20061204
  Receipt Date: 20061201
  Transmission Date: 20070319
  Serious: Yes (Life-Threatening, Hospitalization)
  Sender: FDA-Public Use
  Company Number: GB-ROXANE LABORATORIES, INC-2006-UK-04852UK

PATIENT
  Age: 51 Year
  Sex: Female

DRUGS (7)
  1. MORPHINE SUL INJ [Suspect]
  2. BUPIVACAINE [Suspect]
  3. AMOXICILLIN + CLAVULANATE POTASSIUM [Suspect]
  4. FENTANYL [Suspect]
  5. ONDANSETRON [Suspect]
  6. PARECOXIB SODIUM [Suspect]
  7. PROPOFOL [Suspect]

REACTIONS (1)
  - ANAPHYLACTIC REACTION [None]
